FAERS Safety Report 17685214 (Version 1)
Quarter: 2020Q2

REPORT INFORMATION
  Report Type: Spontaneous
  Country: US (occurrence: US)
  Receive Date: 20200420
  Receipt Date: 20200420
  Transmission Date: 20200714
  Serious: No
  Sender: FDA-Public Use
  Company Number: US-SA-2020SA102459

PATIENT
  Age: 29 Year
  Sex: Female

DRUGS (4)
  1. DUPIXENT [Suspect]
     Active Substance: DUPILUMAB
     Dosage: 300 MG, QOW
     Route: 058
     Dates: start: 2020
  2. TRIAMCINOLON [TRIAMCINOLONE] [Concomitant]
  3. NORLYDA [Concomitant]
     Active Substance: NORETHINDRONE
  4. DUPIXENT [Suspect]
     Active Substance: DUPILUMAB
     Indication: DERMATITIS ATOPIC
     Dosage: 600 MG, 1X  (2 PFS DAY 1)
     Route: 058
     Dates: start: 20200331, end: 20200331

REACTIONS (2)
  - Dermatitis atopic [Not Recovered/Not Resolved]
  - Sleep disorder [Not Recovered/Not Resolved]

NARRATIVE: CASE EVENT DATE: 202004
